FAERS Safety Report 25205378 (Version 1)
Quarter: 2025Q2

REPORT INFORMATION
  Report Type: Spontaneous
  Country: US (occurrence: US)
  Receive Date: 20250417
  Receipt Date: 20250417
  Transmission Date: 20250717
  Serious: Yes (Other)
  Sender: AMNEAL
  Company Number: US-AMNEAL PHARMACEUTICALS-2025-AMRX-01350

PATIENT
  Age: 58 Year
  Sex: Female

DRUGS (8)
  1. RYTARY [Suspect]
     Active Substance: CARBIDOPA\LEVODOPA
     Indication: Parkinson^s disease
     Dosage: 4 CAPSULES, 4 /DAY
     Route: 048
  2. CREXONT [Suspect]
     Active Substance: CARBIDOPA\LEVODOPA
     Indication: Parkinson^s disease
     Dosage: 3 CAPSULES, DAILY
     Route: 048
  3. CREXONT [Suspect]
     Active Substance: CARBIDOPA\LEVODOPA
     Dosage: 04 TABLETS, DAILY
     Route: 048
     Dates: start: 20250308
  4. METOPROLOL [Concomitant]
     Active Substance: METOPROLOL
     Indication: Product used for unknown indication
     Route: 048
  5. GABAPENTIN [Concomitant]
     Active Substance: GABAPENTIN
     Indication: Product used for unknown indication
     Route: 048
  6. HYDROCODONE [Concomitant]
     Active Substance: HYDROCODONE
     Indication: Product used for unknown indication
     Route: 048
  7. AMANTADINE [Concomitant]
     Active Substance: AMANTADINE
     Indication: Product used for unknown indication
     Route: 048
  8. CLONAZEPAM [Concomitant]
     Active Substance: CLONAZEPAM
     Indication: Product used for unknown indication
     Route: 048

REACTIONS (5)
  - Dystonia [Recovered/Resolved]
  - Muscle spasms [Unknown]
  - Therapeutic response shortened [Unknown]
  - Loss of therapeutic response [Unknown]
  - Insomnia [Unknown]

NARRATIVE: CASE EVENT DATE: 20250308
